FAERS Safety Report 4871287-6 (Version None)
Quarter: 2005Q4

REPORT INFORMATION
  Report Type: 
  Country: None (occurrence: None)
  Receive Date: 20051229
  Receipt Date: 20051215
  Transmission Date: 20060501
  Serious: Yes (Other)
  Sender: FDA-Public Use
  Company Number: S05-USA-05264-01

PATIENT

DRUGS (2)
  1. LEXAPRO [Suspect]
     Dates: start: 20030601
  2. LAMICTAL [Suspect]
     Dates: start: 20050401

REACTIONS (2)
  - DRUG INTERACTION [None]
  - DYSKINESIA [None]
